FAERS Safety Report 4455762-4 (Version None)
Quarter: 2004Q3

REPORT INFORMATION
  Report Type: 
  Country: None (occurrence: None)
  Receive Date: 20040917
  Receipt Date: 20040904
  Transmission Date: 20050211
  Serious: Yes (Hospitalization)
  Sender: FDA-Public Use
  Company Number: FR-2004-031682

PATIENT
  Age: 18 Year
  Sex: Male

DRUGS (5)
  1. SOTALOL HCL [Suspect]
     Indication: ARRHYTHMIA
     Dosage: SEE IMAGE, ORAL
     Route: 048
     Dates: start: 20040101, end: 20040101
  2. SOTALOL HCL [Suspect]
     Indication: ARRHYTHMIA
     Dosage: SEE IMAGE, ORAL
     Route: 048
     Dates: start: 20040101
  3. SINTROM [Suspect]
     Indication: ARRHYTHMIA
     Dates: start: 19910101, end: 20040101
  4. SECTRAL [Suspect]
     Indication: ARRHYTHMIA
     Dates: start: 19910101, end: 20040101
  5. DIGOXIN [Concomitant]

REACTIONS (3)
  - KERATOCONJUNCTIVITIS SICCA [None]
  - PSORIASIS [None]
  - PURPURA [None]
